FAERS Safety Report 23203192 (Version 1)
Quarter: 2023Q4

REPORT INFORMATION
  Report Type: Spontaneous
  Country: US (occurrence: None)
  Receive Date: 20231120
  Receipt Date: 20231120
  Transmission Date: 20240109
  Serious: Yes (Hospitalization)
  Sender: FDA-Public Use
  Company Number: None

PATIENT
  Age: 15 Year
  Sex: Female

DRUGS (1)
  1. GENOTROPIN [Suspect]
     Active Substance: SOMATROPIN
     Dosage: FREQUENCY : DAILY;?

REACTIONS (5)
  - Cerebral haemorrhage [None]
  - Seizure [None]
  - Insurance issue [None]
  - Product availability issue [None]
  - Therapy interrupted [None]
